FAERS Safety Report 4767778-9 (Version None)
Quarter: 2005Q3

REPORT INFORMATION
  Report Type: 
  Country: None (occurrence: None)
  Receive Date: 20050912
  Receipt Date: 20050902
  Transmission Date: 20060218
  Serious: Yes (Hospitalization, Other)
  Sender: FDA-Public Use
  Company Number: 2005-04-1185

PATIENT
  Age: 57 Year
  Sex: Female
  Weight: 48 kg

DRUGS (8)
  1. PEG-INTRON [Suspect]
     Indication: HEPATITIS C
     Dosage: 80 MCG QW SUBCUTANEOUS
     Route: 058
     Dates: start: 20050104, end: 20050118
  2. REBETOL [Suspect]
     Indication: HEPATITIS C
     Dosage: SEE IMAGE
     Route: 048
     Dates: start: 20040409, end: 20050118
  3. REBETOL [Suspect]
     Indication: HEPATITIS C
     Dosage: SEE IMAGE
     Route: 048
     Dates: start: 20050104, end: 20050118
  4. REBETOL [Suspect]
     Indication: HEPATITIS C
     Dosage: SEE IMAGE
     Route: 048
     Dates: start: 20040409
  5. INTRON A [Suspect]
     Indication: HEPATITIS C
     Dosage: SEE IMAGE
     Route: 030
     Dates: start: 20040409, end: 20040422
  6. INTRON A [Suspect]
     Indication: HEPATITIS C
     Dosage: SEE IMAGE
     Route: 030
     Dates: start: 20040409, end: 20041005
  7. INTRON A [Suspect]
     Indication: HEPATITIS C
     Dosage: SEE IMAGE
     Route: 030
     Dates: start: 20040424, end: 20041005
  8. GASTER TABLETS [Concomitant]

REACTIONS (8)
  - APPENDICITIS [None]
  - BACTEROIDES INFECTION [None]
  - ENTEROCOCCAL INFECTION [None]
  - LARGE INTESTINE PERFORATION [None]
  - NEUTROPHIL COUNT DECREASED [None]
  - PELVIC ABSCESS [None]
  - PURULENT DISCHARGE [None]
  - WHITE BLOOD CELL COUNT DECREASED [None]
